FAERS Safety Report 7128095-5 (Version None)
Quarter: 2010Q4

REPORT INFORMATION
  Report Type: 
  Country: None (occurrence: None)
  Receive Date: 20101112
  Receipt Date: 20101103
  Transmission Date: 20110411
  Serious: Yes (Other)
  Sender: FDA-Public Use
  Company Number: 2010SP058512

PATIENT
  Age: 31 Year
  Sex: Female

DRUGS (4)
  1. NUVARING [Suspect]
     Indication: CONTRACEPTION
     Dosage: ; VAG
     Route: 067
     Dates: start: 20100701
  2. NUVARING [Suspect]
     Indication: OVARIAN CYST
     Dosage: ; VAG
     Route: 067
     Dates: start: 20100701
  3. NUVARING [Suspect]
     Indication: PROPHYLAXIS
     Dosage: ; VAG
     Route: 067
     Dates: start: 20100701
  4. ASMANEX TWISTHALER [Concomitant]

REACTIONS (2)
  - ARRHYTHMIA [None]
  - OFF LABEL USE [None]
